FAERS Safety Report 10388795 (Version 1)
Quarter: 2014Q1

REPORT INFORMATION
  Report Type: Spontaneous
  Country: US (occurrence: None)
  Receive Date: 20140306
  Receipt Date: 20140306
  Transmission Date: 20141002
  Serious: Yes (Hospitalization, Other)
  Sender: FDA-Public Use
  Company Number: 163-21880-13064099

PATIENT
  Age: 55 Year
  Sex: Female

DRUGS (24)
  1. REVLIMID (LENALIDOMIDE) (10 MILLIGRAM, CAPSULES) [Suspect]
     Indication: 5Q MINUS SYNDROME
     Route: 048
     Dates: start: 200610, end: 20061127
  2. REVLIMID (LENALIDOMIDE) (10 MILLIGRAM, CAPSULES) [Suspect]
     Indication: REFRACTORY CYTOPENIA WITH UNILINEAGE DYSPLASIA
     Route: 048
     Dates: start: 200610, end: 20061127
  3. ACIPHEX (RABEPRAZOLE SODIUM) [Concomitant]
  4. ASPIRIN (ACETYLSALICYLIC ACID) [Concomitant]
  5. CELEBREX (CELECOXIB) [Concomitant]
  6. HCTZ (HYDROCHLOROTHIAZIDE) [Concomitant]
  7. KLOR-CON (POTASSIUM CHLORIDE) [Concomitant]
  8. KOMBIGLYZE XR (KOMBIGLYZE) [Concomitant]
  9. SYNTHROID (LEVOTHYROXINE SODIUM) [Concomitant]
  10. MULTIVITAMINS [Concomitant]
  11. OXYBUTYNIN CHLORIDE (OXYBUTYNIN HYDROCHLORIDE) [Concomitant]
  12. SINGULAIR (MONTELUKAST SODIUM0 [Concomitant]
  13. SYMBICORT (SYMBICORT TURBUHALER ^DRACO^ ) [Concomitant]
  14. TOPAMAX (TOPIRAMATE) [Concomitant]
  15. TRAMADOL/ACETAMINOPHEN (ULTRACET) [Concomitant]
  16. TRAZODONE [Concomitant]
  17. WELCHOL (COLESEVELAM HYDROCHLORIDE) (625 MILLIGRAM, TABLET) (COLESEVELAM HYDROCHLORIDE) [Concomitant]
  18. XYZAL (LEVOCETIRIZINE DIHYDROCHLORIDE) [Concomitant]
  19. CYMBALTA (DULOXETINE HYDROCHLORIDE) [Concomitant]
  20. VOLTAREN (DICLOFENAC SODIUM) [Concomitant]
  21. STEROIDS (CORTICOSTEROIDS) [Concomitant]
  22. VAGISIL [Concomitant]
  23. NITROFURANTOIN [Concomitant]
  24. NEULASTA (PEGFILGRASTIM) [Concomitant]

REACTIONS (7)
  - Pneumonitis [None]
  - Pancytopenia [None]
  - Neutropenia [None]
  - Neuropathy peripheral [None]
  - Sinusitis [None]
  - Diarrhoea [None]
  - Pharyngitis streptococcal [None]
